FAERS Safety Report 21354207 (Version 1)
Quarter: 2022Q3

REPORT INFORMATION
  Report Type: Spontaneous
  Country: RU (occurrence: RU)
  Receive Date: 20220920
  Receipt Date: 20220920
  Transmission Date: 20221027
  Serious: No
  Sender: FDA-Public Use
  Company Number: RU-009507513-2209RUS003607

PATIENT
  Sex: Female

DRUGS (2)
  1. LAGEVRIO [Suspect]
     Active Substance: MOLNUPIRAVIR
     Indication: COVID-19 treatment
     Dosage: 2 DOSAGE FORM
     Route: 048
     Dates: start: 20220902, end: 20220905
  2. LAGEVRIO [Suspect]
     Active Substance: MOLNUPIRAVIR
     Dosage: 4 DOSAGE FORM, BID
     Route: 048
     Dates: start: 20220906

REACTIONS (9)
  - Feeling abnormal [Recovered/Resolved]
  - Chest pain [Recovered/Resolved]
  - Chest discomfort [Recovered/Resolved]
  - Swollen tongue [Recovered/Resolved]
  - Tongue movement disturbance [Recovered/Resolved]
  - Speech disorder [Recovered/Resolved]
  - Blood pressure increased [Recovered/Resolved]
  - Dysgeusia [Unknown]
  - Product use issue [Unknown]

NARRATIVE: CASE EVENT DATE: 20220902
